FAERS Safety Report 16986000 (Version 1)
Quarter: 2019Q4

REPORT INFORMATION
  Report Type: Spontaneous
  Country: US (occurrence: US)
  Receive Date: 20191031
  Receipt Date: 20191031
  Transmission Date: 20200122
  Serious: Yes (Other)
  Sender: FDA-Public Use
  Company Number: None

PATIENT
  Age: 63 Year
  Sex: Female

DRUGS (1)
  1. GAVILYTE - N [Suspect]
     Active Substance: POLYETHYLENE GLYCOL 3350\POTASSIUM CHLORIDE\SODIUM BICARBONATE\SODIUM CHLORIDE
     Indication: COLONOSCOPY
     Dosage: ?          OTHER FREQUENCY:ONCE;?
     Route: 048
     Dates: start: 20190801, end: 20190801

REACTIONS (3)
  - Hyponatraemia [None]
  - Seizure [None]
  - Dehydration [None]

NARRATIVE: CASE EVENT DATE: 20190801
